FAERS Safety Report 19894727 (Version 1)
Quarter: 2021Q3

REPORT INFORMATION
  Report Type: Spontaneous
  Country: US (occurrence: US)
  Receive Date: 20210929
  Receipt Date: 20210929
  Transmission Date: 20211014
  Serious: Yes (Hospitalization, Other)
  Sender: FDA-Public Use
  Company Number: US-LUPIN PHARMACEUTICALS INC.-2021-18438

PATIENT
  Age: 6 Year
  Sex: Male

DRUGS (1)
  1. CETIRIZINE [Suspect]
     Active Substance: CETIRIZINE HYDROCHLORIDE
     Indication: RHINITIS ALLERGIC
     Dosage: UNK (HE RECEIVED A HEAPING SPOONFUL OF THE CETIRIZINE WHICH WAS EQUATED BETWEEN 15 AND 20ML (15?20MG
     Route: 065

REACTIONS (3)
  - Toxicity to various agents [Recovering/Resolving]
  - Anticholinergic syndrome [Recovering/Resolving]
  - Accidental overdose [Unknown]
